FAERS Safety Report 7530744-4 (Version None)
Quarter: 2011Q2

REPORT INFORMATION
  Report Type: 
  Country: None (occurrence: None)
  Receive Date: 20110607
  Receipt Date: 20110527
  Transmission Date: 20111010
  Serious: Yes (Other)
  Sender: FDA-Public Use
  Company Number: BR-ABBOTT-11P-020-0730102-00

PATIENT
  Sex: Female
  Weight: 75 kg

DRUGS (6)
  1. SORBITAN [Concomitant]
     Indication: DEPRESSION
     Route: 048
     Dates: start: 20100101
  2. HUMIRA [Suspect]
     Indication: RHEUMATOID ARTHRITIS
     Route: 058
     Dates: start: 20101103
  3. QUETIAPINE [Concomitant]
     Indication: DEPRESSION
     Route: 048
     Dates: start: 20100101
  4. METHOTREXATE [Concomitant]
     Indication: RHEUMATOID ARTHRITIS
     Route: 048
     Dates: start: 20101101
  5. TORLOS-H [Concomitant]
     Indication: HYPERTENSION
     Dosage: 1 IN 1 DAY, 50 MG/12.5 MG
     Route: 048
     Dates: start: 20040101
  6. PREDNISONE [Concomitant]
     Indication: RHEUMATOID ARTHRITIS
     Route: 048

REACTIONS (6)
  - CARDIOMEGALY [None]
  - OEDEMA [None]
  - PERICARDIAL EFFUSION [None]
  - CHEST PAIN [None]
  - DYSPNOEA [None]
  - INFLUENZA [None]
